FAERS Safety Report 13031303 (Version 1)
Quarter: 2016Q4

REPORT INFORMATION
  Report Type: Spontaneous
  Country: PE (occurrence: PE)
  Receive Date: 20161215
  Receipt Date: 20161215
  Transmission Date: 20170207
  Serious: Yes (Death)
  Sender: FDA-Public Use
  Company Number: PE-GLAXOSMITHKLINE-PE2016GSK184359

PATIENT
  Age: 96 Year
  Sex: Female

DRUGS (1)
  1. SERETIDE [Suspect]
     Active Substance: FLUTICASONE PROPIONATE\SALMETEROL XINAFOATE
     Indication: ASTHMA
     Dosage: 1 PUFF(S), QD
     Route: 055
     Dates: start: 20110714

REACTIONS (2)
  - Respiratory disorder [Fatal]
  - Infection [Fatal]

NARRATIVE: CASE EVENT DATE: 20161112
